FAERS Safety Report 26065796 (Version 1)
Quarter: 2025Q4

REPORT INFORMATION
  Report Type: Spontaneous
  Country: US (occurrence: US)
  Receive Date: 20251119
  Receipt Date: 20251119
  Transmission Date: 20260118
  Serious: Yes (Hospitalization, Other)
  Sender: NOVO NORDISK
  Company Number: US-NOVOPROD-1564901

PATIENT
  Sex: Female

DRUGS (1)
  1. NOVOLOG [Suspect]
     Active Substance: INSULIN ASPART
     Indication: Diabetes mellitus
     Dosage: UNK

REACTIONS (6)
  - Myocardial infarction [Unknown]
  - Hip fracture [Unknown]
  - Limb injury [Unknown]
  - Herpes zoster [Unknown]
  - Fall [Unknown]
  - Eye injury [Unknown]
